FAERS Safety Report 9432539 (Version 9)
Quarter: 2016Q1

REPORT INFORMATION
  Report Type: Report from Study
  Country: BR (occurrence: BR)
  Receive Date: 20130731
  Receipt Date: 20160205
  Transmission Date: 20160526
  Serious: Yes (Hospitalization, Other)
  Sender: FDA-Public Use
  Company Number: PHHY2013BR081172

PATIENT
  Sex: Female
  Weight: 64 kg

DRUGS (13)
  1. DIPYRONE [Concomitant]
     Active Substance: DIPYRONE
     Indication: HEADACHE
     Route: 065
  2. ENALAPRIL MALEATE. [Concomitant]
     Active Substance: ENALAPRIL MALEATE
     Indication: RENAL DISORDER
     Dosage: 1 DF, QD
     Route: 048
  3. FOLIC ACID. [Concomitant]
     Active Substance: FOLIC ACID
     Indication: SICKLE CELL ANAEMIA
     Dosage: 1 DF, QD
     Route: 048
  4. DICLOFENAC [Concomitant]
     Active Substance: DICLOFENAC
     Indication: PRODUCT USED FOR UNKNOWN INDICATION
     Route: 065
  5. HYDREA [Concomitant]
     Active Substance: HYDROXYUREA
     Indication: PRODUCT USED FOR UNKNOWN INDICATION
     Dosage: 3 DF, QW
     Route: 048
  6. EXJADE [Suspect]
     Active Substance: DEFERASIROX
     Indication: SICKLE CELL ANAEMIA
     Dosage: 1 DF, QW3
     Route: 048
     Dates: start: 2011
  7. CARBAMAZEPINE. [Concomitant]
     Active Substance: CARBAMAZEPINE
     Indication: SEIZURE
     Dosage: 4.5 DF (4.5 TABLETS), QD
     Route: 048
  8. VALPROIC ACID. [Concomitant]
     Active Substance: VALPROIC ACID
     Indication: SEIZURE
     Dosage: 1 DF, QD
     Route: 048
  9. LUFTAL [Concomitant]
     Active Substance: DIMETHICONE
     Indication: PRODUCT USED FOR UNKNOWN INDICATION
     Route: 065
  10. PHENYTOIN. [Concomitant]
     Active Substance: PHENYTOIN
     Indication: PRODUCT USED FOR UNKNOWN INDICATION
     Route: 065
     Dates: start: 20130704
  11. RANITIDINE [Concomitant]
     Active Substance: RANITIDINE\RANITIDINE HYDROCHLORIDE
     Indication: GASTROINTESTINAL DISORDER
     Dosage: 1 DF, QD
     Route: 048
  12. DEPAKENE [Concomitant]
     Active Substance: VALPROIC ACID
     Indication: SEIZURE
     Dosage: 1 DF, QD
     Route: 048
     Dates: start: 2013
  13. VERTIX//FLUNARIZINE DIHYDROCHLORIDE [Concomitant]
     Active Substance: FLUNARIZINE HYDROCHLORIDE
     Indication: HEADACHE
     Route: 065

REACTIONS (17)
  - Haemorrhagic stroke [Unknown]
  - Speech disorder [Unknown]
  - Liver disorder [Recovering/Resolving]
  - Inappropriate schedule of drug administration [Unknown]
  - Pruritus [Unknown]
  - Limb injury [Recovering/Resolving]
  - Abdominal distension [Unknown]
  - Walking disability [Recovering/Resolving]
  - Cerebrovascular accident [Recovering/Resolving]
  - Ischaemia [Recovering/Resolving]
  - Hypokinesia [Recovering/Resolving]
  - Sedation [Not Recovered/Not Resolved]
  - Gamma-glutamyltransferase abnormal [Unknown]
  - Blindness [Recovering/Resolving]
  - Asthenia [Recovering/Resolving]
  - Coma [Unknown]
  - Emotional disorder [Recovering/Resolving]

NARRATIVE: CASE EVENT DATE: 2012
